FAERS Safety Report 12089197 (Version 1)
Quarter: 2016Q1

REPORT INFORMATION
  Report Type: Spontaneous
  Country: US (occurrence: None)
  Receive Date: 20160217
  Receipt Date: 20160217
  Transmission Date: 20160526
  Serious: No
  Sender: FDA-Public Use
  Company Number: None

PATIENT
  Age: 21 Year
  Sex: Male
  Weight: 61.24 kg

DRUGS (1)
  1. DOXYCYCLINE 100MG [Suspect]
     Active Substance: DOXYCYCLINE
     Indication: DERMATITIS
     Route: 048

REACTIONS (4)
  - Erythema [None]
  - Pruritus [None]
  - Migraine [None]
  - Vision blurred [None]

NARRATIVE: CASE EVENT DATE: 20160211
